FAERS Safety Report 8544256-2 (Version None)
Quarter: 2012Q3

REPORT INFORMATION
  Report Type: 
  Country: None (occurrence: None)
  Receive Date: 20120727
  Receipt Date: 20120716
  Transmission Date: 20120928
  Serious: Yes (Hospitalization, Other)
  Sender: FDA-Public Use
  Company Number: US-ELI_LILLY_AND_COMPANY-US201203005529

PATIENT
  Sex: Female
  Weight: 58.05 kg

DRUGS (18)
  1. FORTEO [Suspect]
     Indication: OSTEOPOROSIS
     Dosage: 20 UG, QD
     Route: 030
     Dates: start: 20120308
  2. ASCORBIC ACID [Concomitant]
     Dosage: UNK
  3. ADVAIR [Concomitant]
     Dosage: UNK UNK, BID
  4. BENEFIBER [Concomitant]
  5. NITROFURANTOIN [Concomitant]
     Indication: PRODUCT USED FOR UNKNOWN INDICATION
     Dosage: 50 MG, EACH MORNING
  6. OMEPRAZOLE [Concomitant]
     Indication: PRODUCT USED FOR UNKNOWN INDICATION
     Dosage: 20 MG, EACH EVENING
  7. FIBER [Concomitant]
     Dosage: UNK
  8. PREMARIN [Concomitant]
     Dosage: 0.03 MG, QD
  9. ASPIRIN [Concomitant]
     Dosage: 81 MG, QD
  10. VITAMIN D [Concomitant]
     Dosage: UNK
  11. SPIRIVA [Concomitant]
     Dosage: UNK UNK, QD
  12. HYDROCODONE BITARTRATE [Concomitant]
     Indication: PAIN
     Dosage: UNK UNK, PRN
  13. VITAMIN E [Concomitant]
     Dosage: UNK
  14. METOPROLOL [Concomitant]
     Dosage: 25 MG, QD
  15. LISINOPRIL [Concomitant]
     Dosage: 5 MG, QD
  16. ZOLPIDEM [Concomitant]
     Dosage: 5 MG, QD
  17. FORTEO [Suspect]
     Dosage: 20 UG, QD
     Route: 030
     Dates: start: 20120308
  18. LOVAZA [Concomitant]
     Dosage: 1000 MG, QD

REACTIONS (14)
  - DIZZINESS [None]
  - VOMITING [None]
  - NAUSEA [None]
  - LOWER LIMB FRACTURE [None]
  - BLOOD CALCIUM INCREASED [None]
  - INCORRECT ROUTE OF DRUG ADMINISTRATION [None]
  - HEART RATE INCREASED [None]
  - PAIN [None]
  - FEMUR FRACTURE [None]
  - HIP SURGERY [None]
  - SURGERY [None]
  - MYALGIA [None]
  - CONTUSION [None]
  - ASTHENIA [None]
